FAERS Safety Report 7394211-3 (Version None)
Quarter: 2011Q2

REPORT INFORMATION
  Report Type: 
  Country: None (occurrence: None)
  Receive Date: 20110405
  Receipt Date: 20110328
  Transmission Date: 20111010
  Serious: Yes (Other)
  Sender: FDA-Public Use
  Company Number: US-ASTRAZENECA-2011SE17802

PATIENT
  Sex: Male

DRUGS (6)
  1. GEODON [Concomitant]
     Dates: start: 20070611
  2. TRAZODONE HCL [Concomitant]
     Dates: start: 20070611
  3. VALIUM [Concomitant]
     Dates: start: 20070611
  4. SEROQUEL [Suspect]
     Dosage: LOWERED TO 100 MG QHS
     Route: 048
     Dates: start: 20070601
  5. ABILIFY [Concomitant]
     Dates: start: 20070611
  6. ZOLOFT [Concomitant]
     Dates: start: 20070611

REACTIONS (5)
  - DIABETIC NEUROPATHY [None]
  - DIABETES MELLITUS INADEQUATE CONTROL [None]
  - FUNGAL INFECTION [None]
  - TYPE 2 DIABETES MELLITUS [None]
  - VISUAL IMPAIRMENT [None]
